FAERS Safety Report 5723775-8 (Version None)
Quarter: 2008Q2

REPORT INFORMATION
  Report Type: 
  Country: None (occurrence: None)
  Receive Date: 20080430
  Receipt Date: 20080421
  Transmission Date: 20081010
  Serious: Yes (Disabling)
  Sender: FDA-Public Use
  Company Number: JP-MERCK-0804USA02253

PATIENT
  Age: 73 Year
  Sex: Male

DRUGS (11)
  1. PEPCID RPD [Suspect]
     Indication: GASTRITIS
     Route: 048
  2. VESICARE [Suspect]
     Indication: HYPERTONIC BLADDER
     Route: 048
     Dates: start: 20071203, end: 20071226
  3. VESICARE [Suspect]
     Route: 048
     Dates: start: 20071227, end: 20080317
  4. SULPERAZON [Suspect]
     Route: 042
     Dates: start: 20080314, end: 20080317
  5. MAINTATE [Concomitant]
     Indication: HYPERTENSION
     Route: 048
  6. CARDENALIN [Concomitant]
     Indication: HYPERTENSION
     Route: 048
  7. ADALAT [Concomitant]
     Indication: HYPERTENSION
     Route: 048
  8. ACECOL [Concomitant]
     Indication: HYPERTENSION
     Route: 048
  9. MICARDIS [Concomitant]
     Indication: HYPERTENSION
     Route: 048
  10. URSO 250 [Concomitant]
     Indication: HYPERTENSION
     Route: 048
  11. PROMAC [Concomitant]
     Indication: GASTRITIS
     Route: 048

REACTIONS (1)
  - RENAL FAILURE CHRONIC [None]
